FAERS Safety Report 9953264 (Version 1)
Quarter: 2014Q1

REPORT INFORMATION
  Report Type: Spontaneous
  Country: PR (occurrence: PR)
  Receive Date: 20140304
  Receipt Date: 20140304
  Transmission Date: 20141002
  Serious: No
  Sender: FDA-Public Use
  Company Number: PR-ABBVIE-13P-131-1076567-00

PATIENT
  Sex: Female
  Weight: 68.1 kg

DRUGS (1)
  1. HUMIRA [Suspect]
     Indication: PSORIASIS
     Route: 058
     Dates: start: 201111, end: 20130411

REACTIONS (1)
  - Drug ineffective [Recovered/Resolved]
